FAERS Safety Report 14599703 (Version 1)
Quarter: 2018Q1

REPORT INFORMATION
  Report Type: Spontaneous
  Country: FR (occurrence: FR)
  Receive Date: 20180305
  Receipt Date: 20180305
  Transmission Date: 20180509
  Serious: Yes (Life-Threatening)
  Sender: FDA-Public Use
  Company Number: FR-ASTRAZENECA-2018SE26566

PATIENT
  Age: 54 Year
  Sex: Male

DRUGS (10)
  1. VALIUM [Suspect]
     Active Substance: DIAZEPAM
     Dosage: 14 DOSAGE FORM, ONCE/SINGLE ADMINISTRATION
     Route: 048
     Dates: start: 20170918, end: 20170918
  2. VALIUM [Suspect]
     Active Substance: DIAZEPAM
     Route: 048
  3. IMOVANE [Suspect]
     Active Substance: ZOPICLONE
     Dosage: 14 DOSAGE FORM, ONCE/SINGLE ADMINISTRATION
     Route: 048
     Dates: start: 20170918, end: 20170918
  4. NICOPATCH [Concomitant]
     Active Substance: NICOTINE
     Route: 065
  5. ZOLOFT [Suspect]
     Active Substance: SERTRALINE HYDROCHLORIDE
     Dosage: 14 DOSAGE FORM, ONCE/SINGLE ADMINISTRATION
     Route: 048
     Dates: start: 20170918, end: 20170918
  6. XEROQUEL [Suspect]
     Active Substance: QUETIAPINE FUMARATE
     Dosage: 20 DOSAGE FORM, ONCE/SINGLE ADMINISTRATION
     Route: 048
     Dates: start: 20170918, end: 20170918
  7. LIORESAL [Suspect]
     Active Substance: BACLOFEN
     Dosage: 10 DOSAGE FORM, ONCE/SINGLE ADMINISTRATION
     Route: 048
     Dates: start: 20170918, end: 20170918
  8. ZOLOFT [Suspect]
     Active Substance: SERTRALINE HYDROCHLORIDE
     Route: 065
  9. LEXOMIL [Suspect]
     Active Substance: BROMAZEPAM
     Indication: ANXIETY
     Dosage: 1 UNIT, DAILY
     Route: 065
  10. LEXOMIL [Suspect]
     Active Substance: BROMAZEPAM
     Indication: ANXIETY
     Dosage: 21 DOSAGE FORM, ONCE/SINGLE ADMINISTRATION
     Route: 048
     Dates: start: 20170918, end: 20170918

REACTIONS (2)
  - Pneumonia aspiration [Recovered/Resolved]
  - Coma [Recovered/Resolved]

NARRATIVE: CASE EVENT DATE: 20170919
